FAERS Safety Report 25086079 (Version 1)
Quarter: 2025Q1

REPORT INFORMATION
  Report Type: Spontaneous
  Country: US (occurrence: US)
  Receive Date: 20250317
  Receipt Date: 20250317
  Transmission Date: 20250409
  Serious: No
  Sender: PFIZER
  Company Number: US-PFIZER INC-202500055797

PATIENT
  Age: 51 Year
  Sex: Female
  Weight: 85.73 kg

DRUGS (1)
  1. XELJANZ [Suspect]
     Active Substance: TOFACITINIB CITRATE
     Indication: Rheumatoid arthritis
     Dosage: 5 MG, 2X/DAY (5MG TWICE A DAY BY MOUTH)
     Route: 048
     Dates: start: 2024

REACTIONS (3)
  - Nasopharyngitis [Recovering/Resolving]
  - Allergic sinusitis [Recovering/Resolving]
  - Aphonia [Recovering/Resolving]

NARRATIVE: CASE EVENT DATE: 20250303
